FAERS Safety Report 6276416-8 (Version None)
Quarter: 2009Q3

REPORT INFORMATION
  Report Type: 
  Country: None (occurrence: None)
  Receive Date: 20090717
  Receipt Date: 20090717
  Transmission Date: 20100115
  Serious: Yes (Death, Hospitalization)
  Sender: FDA-Public Use
  Company Number: None

PATIENT
  Sex: Female
  Weight: 108.1 kg

DRUGS (2)
  1. CARBOPLATIN [Suspect]
     Dosage: 160 MG
  2. TAXOL [Suspect]
     Dosage: 90 MG

REACTIONS (10)
  - ASCITES [None]
  - DEHYDRATION [None]
  - DIARRHOEA [None]
  - DYSPNOEA [None]
  - GASTROINTESTINAL HAEMORRHAGE [None]
  - HAEMORRHAGE [None]
  - HYPOTENSION [None]
  - HYPOVOLAEMIA [None]
  - PLEURAL EFFUSION [None]
  - SEPSIS [None]
